FAERS Safety Report 23468225 (Version 1)
Quarter: 2024Q1

REPORT INFORMATION
  Report Type: Spontaneous
  Country: US (occurrence: US)
  Receive Date: 20240201
  Receipt Date: 20240201
  Transmission Date: 20240410
  Serious: Yes (Hospitalization, Other)
  Sender: FDA-Public Use
  Company Number: US-Accord-404171

PATIENT
  Age: 27 Year
  Sex: Female

DRUGS (4)
  1. LETROZOLE [Suspect]
     Active Substance: LETROZOLE
     Indication: Ovarian cancer stage III
     Dates: start: 201701
  2. PALBOCICLIB [Suspect]
     Active Substance: PALBOCICLIB
     Indication: Ovarian cancer stage III
     Dosage: 25 WEEKS
     Dates: start: 201803, end: 201810
  3. CARBOPLATIN [Concomitant]
     Active Substance: CARBOPLATIN
     Indication: Ovarian cancer stage III
     Dosage: 3 CYCLES
  4. DOXORUBICIN HYDROCHLORIDE [Concomitant]
     Active Substance: DOXORUBICIN HYDROCHLORIDE
     Indication: Ovarian cancer stage III
     Dosage: 3 CYCLES

REACTIONS (8)
  - Fatigue [Unknown]
  - Small intestinal obstruction [Unknown]
  - Drug resistance [Unknown]
  - Atelectasis [Unknown]
  - Hydronephrosis [Unknown]
  - Disease progression [Unknown]
  - Malignant pleural effusion [Unknown]
  - Off label use [Unknown]

NARRATIVE: CASE EVENT DATE: 20180101
